FAERS Safety Report 21822854 (Version 2)
Quarter: 2023Q1

REPORT INFORMATION
  Report Type: Spontaneous
  Country: US (occurrence: US)
  Receive Date: 20230105
  Receipt Date: 20230118
  Transmission Date: 20230417
  Serious: Yes (Hospitalization)
  Sender: FDA-Public Use
  Company Number: US-TEVA-2022-US-2841406

PATIENT
  Age: 65 Year
  Sex: Male

DRUGS (1)
  1. PREDNISONE [Suspect]
     Active Substance: PREDNISONE
     Indication: Mixed connective tissue disease
     Dosage: 40 MILLIGRAM DAILY; 40MG DAILY FOR A YEAR
     Route: 065

REACTIONS (1)
  - Femur fracture [Recovering/Resolving]
